FAERS Safety Report 14008111 (Version 1)
Quarter: 2017Q3

REPORT INFORMATION
  Report Type: Spontaneous
  Country: US (occurrence: US)
  Receive Date: 20170925
  Receipt Date: 20170925
  Transmission Date: 20171128
  Serious: Yes (Other)
  Sender: FDA-Public Use
  Company Number: US-JNJFOC-20170917776

PATIENT
  Age: 54 Year
  Sex: Male

DRUGS (3)
  1. BENICAR [Concomitant]
     Active Substance: OLMESARTAN MEDOXOMIL
     Route: 065
  2. XARELTO [Suspect]
     Active Substance: RIVAROXABAN
     Indication: DEEP VEIN THROMBOSIS
     Route: 048
     Dates: start: 201408
  3. XARELTO [Suspect]
     Active Substance: RIVAROXABAN
     Indication: HYPERCOAGULATION
     Route: 048
     Dates: start: 201408

REACTIONS (4)
  - Hernia repair [Unknown]
  - Musculoskeletal discomfort [Unknown]
  - Road traffic accident [Unknown]
  - Foot operation [Unknown]

NARRATIVE: CASE EVENT DATE: 201511
